FAERS Safety Report 15714515 (Version 2)
Quarter: 2018Q4

REPORT INFORMATION
  Report Type: Spontaneous
  Country: US (occurrence: US)
  Receive Date: 20181212
  Receipt Date: 20181217
  Transmission Date: 20190205
  Serious: Yes (Other)
  Sender: FDA-Public Use
  Company Number: US-PFIZER INC-2018509897

PATIENT
  Age: 41 Year
  Sex: Male

DRUGS (3)
  1. AVYCAZ [Suspect]
     Active Substance: AVIBACTAM SODIUM\CEFTAZIDIME
     Indication: URINARY TRACT INFECTION BACTERIAL
     Dosage: 2.5 G, UNK
     Dates: start: 20181204
  2. HEPARIN [Concomitant]
     Active Substance: HEPARIN SODIUM
     Dosage: UNK
  3. VANCOMYCIN HCL [Suspect]
     Active Substance: VANCOMYCIN HYDROCHLORIDE
     Dosage: UNK
     Route: 042

REACTIONS (2)
  - Extravasation [Unknown]
  - Soft tissue necrosis [Unknown]

NARRATIVE: CASE EVENT DATE: 20181204
